FAERS Safety Report 12715469 (Version 2)
Quarter: 2017Q2

REPORT INFORMATION
  Report Type: Report from Study
  Country: US (occurrence: US)
  Receive Date: 20160906
  Receipt Date: 20170504
  Transmission Date: 20170830
  Serious: Yes (Other)
  Sender: FDA-Public Use
  Company Number: US-ROCHE-1824427

PATIENT
  Age: 61 Year
  Sex: Female
  Weight: 64.7 kg

DRUGS (8)
  1. BEVACIZUMAB [Suspect]
     Active Substance: BEVACIZUMAB
     Indication: MALIGNANT MELANOMA
     Dosage: COURSE ID: 1
     Route: 065
     Dates: start: 20140130
  2. BEVACIZUMAB [Suspect]
     Active Substance: BEVACIZUMAB
     Dosage: COURSE ID: 2
     Route: 065
     Dates: start: 20140220
  3. IPILIMUMAB [Suspect]
     Active Substance: IPILIMUMAB
     Indication: MALIGNANT MELANOMA
     Dosage: COURSE ID: 1
     Route: 065
     Dates: start: 20140130
  4. IPILIMUMAB [Suspect]
     Active Substance: IPILIMUMAB
     Dosage: COURSE ID: 3
     Route: 065
     Dates: start: 20140313
  5. IPILIMUMAB [Suspect]
     Active Substance: IPILIMUMAB
     Dosage: COURSE ID: 4
     Route: 065
     Dates: start: 20140410, end: 20140410
  6. BEVACIZUMAB [Suspect]
     Active Substance: BEVACIZUMAB
     Dosage: COURSE ID: 3
     Route: 065
     Dates: start: 20140313
  7. BEVACIZUMAB [Suspect]
     Active Substance: BEVACIZUMAB
     Dosage: COURSE ID: 4
     Route: 065
     Dates: start: 20140410, end: 20140410
  8. IPILIMUMAB [Suspect]
     Active Substance: IPILIMUMAB
     Dosage: COURSE ID:2
     Route: 065
     Dates: start: 20140220

REACTIONS (4)
  - Nausea [Unknown]
  - Chronic kidney disease [Unknown]
  - Dehydration [Unknown]
  - Rash maculo-papular [Unknown]
